FAERS Safety Report 17818318 (Version 1)
Quarter: 2020Q2

REPORT INFORMATION
  Report Type: Report from Study
  Country: ZA (occurrence: ZA)
  Receive Date: 20200522
  Receipt Date: 20200522
  Transmission Date: 20200714
  Serious: Yes (Disabling)
  Sender: FDA-Public Use
  Company Number: ZA-STI PHARMA LLC-2084130

PATIENT
  Age: 31 Year
  Sex: Male

DRUGS (5)
  1. LINEZOLID. [Suspect]
     Active Substance: LINEZOLID
     Dates: start: 20180719, end: 20181012
  2. TERIZIDONE [Suspect]
     Active Substance: TERIZIDONE
     Dates: start: 20180516, end: 20181012
  3. ETHAMBUTOL HYDROCHLORIDE. [Suspect]
     Active Substance: ETHAMBUTOL HYDROCHLORIDE
     Dates: start: 20180516, end: 20181012
  4. DELAMANID [Suspect]
     Active Substance: DELAMANID
     Dates: start: 20181026
  5. ETHIONAMIDE [Suspect]
     Active Substance: ETHIONAMIDE
     Dates: start: 20180516, end: 20181012

REACTIONS (1)
  - Blindness [None]

NARRATIVE: CASE EVENT DATE: 20181012
